FAERS Safety Report 20746850 (Version 2)
Quarter: 2022Q2

REPORT INFORMATION
  Report Type: Spontaneous
  Country: US (occurrence: US)
  Receive Date: 20220425
  Receipt Date: 20220428
  Transmission Date: 20220721
  Serious: Yes (Other)
  Sender: FDA-Public Use
  Company Number: US-BRISTOL-MYERS SQUIBB COMPANY-2022-026737

PATIENT
  Age: 83 Year
  Sex: Female

DRUGS (1)
  1. POMALYST [Suspect]
     Active Substance: POMALIDOMIDE
     Indication: Plasma cell myeloma
     Dosage: EVERY DAY 1-21 DAYS EVERY 28 DAY CYCLE
     Route: 048
     Dates: start: 20210825

REACTIONS (3)
  - Pneumonia [Unknown]
  - Diarrhoea [Not Recovered/Not Resolved]
  - Faeces discoloured [Not Recovered/Not Resolved]
